FAERS Safety Report 17657797 (Version 3)
Quarter: 2020Q2

REPORT INFORMATION
  Report Type: Spontaneous
  Country: US (occurrence: US)
  Receive Date: 20200411
  Receipt Date: 20200520
  Transmission Date: 20200713
  Serious: Yes (Other)
  Sender: FDA-Public Use
  Company Number: US-ROCHE-2577120

PATIENT
  Age: 36 Year
  Sex: Female

DRUGS (1)
  1. OCREVUS [Suspect]
     Active Substance: OCRELIZUMAB
     Indication: MULTIPLE SCLEROSIS
     Dosage: HAD RECEIVED LAST DOSE OF OCRELIZUMAB ON: 05/DEC/2019.?ONGOING: NO LAST DOSE ADMINISTERED
     Route: 042

REACTIONS (1)
  - COVID-19 [Recovered/Resolved]
